FAERS Safety Report 24140709 (Version 2)
Quarter: 2025Q1

REPORT INFORMATION
  Report Type: Spontaneous
  Country: US (occurrence: US)
  Receive Date: 20240726
  Receipt Date: 20250328
  Transmission Date: 20250408
  Serious: Yes (Hospitalization)
  Sender: AMGEN
  Company Number: US-AMGEN-USASP2024143985

PATIENT
  Age: 70 Year
  Sex: Female

DRUGS (2)
  1. OTEZLA [Suspect]
     Active Substance: APREMILAST
     Indication: Psoriasis
     Dosage: 30 MILLIGRAM, BID
     Route: 048
  2. ACITRETIN [Concomitant]
     Active Substance: ACITRETIN
     Dosage: UNK UNK, QD
     Route: 065

REACTIONS (4)
  - Unevaluable event [Unknown]
  - Pain [Unknown]
  - Psoriasis [Unknown]
  - Product supply issue [Unknown]

NARRATIVE: CASE EVENT DATE: 20240101
